FAERS Safety Report 19586993 (Version 1)
Quarter: 2021Q3

REPORT INFORMATION
  Report Type: Report from Study
  Country: None (occurrence: US)
  Receive Date: 20210721
  Receipt Date: 20210721
  Transmission Date: 20211014
  Serious: Yes (Other)
  Sender: FDA-Public Use
  Company Number: US-ABBVIE-21K-163-3995906-00

PATIENT
  Sex: Female
  Weight: 60.38 kg

DRUGS (3)
  1. COVID?19 VACCINE [Concomitant]
     Indication: COVID-19 IMMUNISATION
     Dosage: UNKNOWN
     Route: 030
  2. COVID?19 VACCINE [Concomitant]
     Dosage: UNKNOWN
     Route: 030
  3. CREON [Suspect]
     Active Substance: PANCRELIPASE AMYLASE\PANCRELIPASE LIPASE\PANCRELIPASE PROTEASE
     Indication: PANCREATIC DISORDER
     Dosage: 3 CAPSULES 30 MINUTES BEFORE EACH MEAL, 1 CAPSULE BEFORE EACH SNACK
     Route: 048
     Dates: start: 2017

REACTIONS (4)
  - Diarrhoea [Unknown]
  - Pancreatic injury [Unknown]
  - Nausea [Not Recovered/Not Resolved]
  - Neoplasm malignant [Not Recovered/Not Resolved]

NARRATIVE: CASE EVENT DATE: 2017
